FAERS Safety Report 18278702 (Version 4)
Quarter: 2020Q4

REPORT INFORMATION
  Report Type: Spontaneous
  Country: JP (occurrence: JP)
  Receive Date: 20200917
  Receipt Date: 20201008
  Transmission Date: 20210113
  Serious: Yes (Death, Hospitalization, Other)
  Sender: FDA-Public Use
  Company Number: JP-PFIZER INC-2020355536

PATIENT
  Age: 9 Decade
  Sex: Female

DRUGS (2)
  1. MEROPENEM. [Suspect]
     Active Substance: MEROPENEM
     Indication: SEPSIS
     Dosage: UNK
     Route: 041
  2. MEROPENEM. [Suspect]
     Active Substance: MEROPENEM
     Indication: CANDIDA SEPSIS

REACTIONS (2)
  - Shock [Fatal]
  - Pancytopenia [Fatal]
